FAERS Safety Report 23852900 (Version 1)
Quarter: 2024Q2

REPORT INFORMATION
  Report Type: Spontaneous
  Country: CN (occurrence: CN)
  Receive Date: 20240514
  Receipt Date: 20240514
  Transmission Date: 20240716
  Serious: Yes (Hospitalization)
  Sender: FDA-Public Use
  Company Number: CN-PFIZER INC-PV202400061453

PATIENT
  Age: 59 Year
  Sex: Female

DRUGS (5)
  1. LINEZOLID [Suspect]
     Active Substance: LINEZOLID
     Indication: Tuberculosis
     Dosage: 0.6 G, ALTERNATE DAY
     Route: 048
     Dates: start: 20231028, end: 20240509
  2. AMINOSALICYLATE SODIUM [Concomitant]
     Active Substance: AMINOSALICYLATE SODIUM
     Indication: Tuberculosis
     Dosage: 2 G, 3X/DAY
     Route: 048
     Dates: start: 20231028, end: 20240509
  3. CLOFAZIMINE [Concomitant]
     Active Substance: CLOFAZIMINE
     Indication: Tuberculosis
     Dosage: 100 MG, 1X/DAY
     Route: 048
     Dates: start: 20231028, end: 20240509
  4. CYCLOSERINE [Concomitant]
     Active Substance: CYCLOSERINE
     Indication: Tuberculosis
     Dosage: 0.25 G, 2X/DAY
     Route: 048
     Dates: start: 20231028, end: 20240509
  5. MOXIFLOXACIN HYDROCHLORIDE [Concomitant]
     Active Substance: MOXIFLOXACIN HYDROCHLORIDE\MOXIFLOXACIN HYDROCHLORIDE MONOHYDRATE
     Indication: Tuberculosis
     Dosage: 0.4 G, 1X/DAY
     Route: 048
     Dates: start: 20231028, end: 20240509

REACTIONS (2)
  - Hypoaesthesia [Recovering/Resolving]
  - Off label use [Unknown]

NARRATIVE: CASE EVENT DATE: 20231028
